FAERS Safety Report 5381774-2 (Version None)
Quarter: 2007Q3

REPORT INFORMATION
  Report Type: 
  Country: None (occurrence: None)
  Receive Date: 20070703
  Receipt Date: 20070703
  Transmission Date: 20080115
  Serious: Yes (Hospitalization)
  Sender: FDA-Public Use
  Company Number: None

PATIENT
  Age: 60 Year
  Sex: Male

DRUGS (1)
  1. DOCETAXEL [Suspect]
     Dosage: 117MG OTHER IV
     Route: 042
     Dates: start: 20070112, end: 20070209

REACTIONS (7)
  - BLOOD POTASSIUM DECREASED [None]
  - COUGH [None]
  - DYSSTASIA [None]
  - NAUSEA [None]
  - PYREXIA [None]
  - VOMITING [None]
  - WEIGHT DECREASED [None]
